FAERS Safety Report 20857736 (Version 2)
Quarter: 2022Q2

REPORT INFORMATION
  Report Type: Spontaneous
  Country: US (occurrence: US)
  Receive Date: 20220521
  Receipt Date: 20220530
  Transmission Date: 20220721
  Serious: Yes (Other)
  Sender: FDA-Public Use
  Company Number: US-CELLTRION INC.-2022US006766

PATIENT

DRUGS (22)
  1. TRUXIMA [Suspect]
     Active Substance: RITUXIMAB-ABBS
     Indication: Mantle cell lymphoma
     Dosage: 761.25 MG EVERY 4 WEEKS X 3 CYCLES.
     Route: 042
     Dates: start: 20220404
  2. TRUXIMA [Suspect]
     Active Substance: RITUXIMAB-ABBS
     Dosage: 768.75 MG EVERY 4 WEEKS X 3 CYCLES
     Route: 042
     Dates: start: 20220502
  3. SODIUM CHLORIDE [Concomitant]
     Active Substance: SODIUM CHLORIDE
     Dosage: 500 ML, IV SOLUTION
     Route: 042
  4. SODIUM CHLORIDE [Concomitant]
     Active Substance: SODIUM CHLORIDE
     Dosage: 540 ML, IV SOLUTION
     Route: 042
  5. FAMOTIDINE [Concomitant]
     Active Substance: FAMOTIDINE
     Dosage: 20 MG TABLETS ONE TABLET BID
  6. FLUTICASONE PROPIONATE [Concomitant]
     Active Substance: FLUTICASONE PROPIONATE
     Dosage: 50 MCG/INH 2 SPRAYS BOTH NOSTRILS
  7. HYDROXYZINE [Concomitant]
     Active Substance: HYDROXYZINE HYDROCHLORIDE
     Dosage: 10 MG TABLETS ONE TABLET TWICE DAILY PRN
  8. HYOSCYAMINE [Concomitant]
     Active Substance: HYOSCYAMINE
     Indication: Abdominal pain
     Dosage: 0.125 MG 1 TABLET QID PRN
  9. INDOMETHACIN [Concomitant]
     Active Substance: INDOMETHACIN
     Dosage: 25 MG CAPSULES ONE CAPSUE TID PRN
  10. METHYLPREDNISOLONE [Concomitant]
     Active Substance: METHYLPREDNISOLONE
     Dosage: TAKE PER PACKAGE INSTRUCTIONS
  11. OMEPRAZOLE [Concomitant]
     Active Substance: OMEPRAZOLE
     Dosage: 40 MG CAPSULES ONE TABLET ONCE DAILY
  12. ONDANSETRON [Concomitant]
     Active Substance: ONDANSETRON
     Dosage: 8 MG Q8H PRN
  13. TRIAMCINOLONE [Concomitant]
     Active Substance: TRIAMCINOLONE
     Dosage: APPLY TOPICALLY TWICE DAILY TO INFECTED AREA
     Route: 061
  14. CANNABIDIOL [Concomitant]
     Active Substance: CANNABIDIOL
     Dosage: 5 MG BID
  15. LISINOPRIL [Concomitant]
     Active Substance: LISINOPRIL
     Dosage: 20 MG
  16. LORATADINE [Concomitant]
     Active Substance: LORATADINE
     Dosage: 20 MG AS NEEDED
  17. VITAMINS [Concomitant]
     Active Substance: VITAMINS
     Dosage: 1 TABLETS DAILY
  18. VITAMIN B COMPLEX [Concomitant]
     Active Substance: CYANOCOBALAMIN\DEXPANTHENOL\NIACINAMIDE\PYRIDOXINE HYDROCHLORIDE\RIBOFLAVIN 5^-PHOSPHATE SODIUM\THIA
     Dosage: 1 TABLET DAILY
  19. FISH OIL [Concomitant]
     Active Substance: FISH OIL
     Dosage: 500 MICROGRAM
  20. ACETAMINOPHEN [Concomitant]
     Active Substance: ACETAMINOPHEN
     Indication: Premedication
     Dosage: 650 MG ONE TABLET BEFORE TREATMENT
  21. DIPHENHYDRAMINE [Concomitant]
     Active Substance: DIPHENHYDRAMINE
     Dosage: 25 MG
  22. PALONOSETRON [Concomitant]
     Active Substance: PALONOSETRON
     Dosage: 0.25 MG

REACTIONS (2)
  - Mantle cell lymphoma [Unknown]
  - Off label use [Unknown]

NARRATIVE: CASE EVENT DATE: 20220404
